FAERS Safety Report 11681572 (Version 1)
Quarter: 2015Q4

REPORT INFORMATION
  Report Type: Spontaneous
  Country: US (occurrence: None)
  Receive Date: 20151028
  Receipt Date: 20151028
  Transmission Date: 20160304
  Serious: Yes (Disabling, Other)
  Sender: FDA-Public Use
  Company Number: None

PATIENT
  Age: 64 Year
  Sex: Female
  Weight: 49.9 kg

DRUGS (9)
  1. ASA [Concomitant]
     Active Substance: ASPIRIN
  2. BIOTIN [Concomitant]
     Active Substance: BIOTIN
  3. GABAPENTIN. [Suspect]
     Active Substance: GABAPENTIN
     Indication: NEURALGIA
     Dosage: 300MG?ONE CAPSULE PO 2XDAY?TOOK ONLY ONE AT BEDTIME ?BY MOUTH
     Route: 048
     Dates: start: 20150817, end: 20150820
  4. MULTI VIT [Concomitant]
  5. STOOL SOFTENER [Concomitant]
     Active Substance: DOCUSATE CALCIUM
  6. CALCITONIN [Concomitant]
     Active Substance: CALCITONIN
  7. CALCIUM [Concomitant]
     Active Substance: CALCIUM
  8. GABAPENTIN. [Suspect]
     Active Substance: GABAPENTIN
     Indication: BACK PAIN
     Dosage: 300MG?ONE CAPSULE PO 2XDAY?TOOK ONLY ONE AT BEDTIME ?BY MOUTH
     Route: 048
     Dates: start: 20150817, end: 20150820
  9. ADVIL [Concomitant]
     Active Substance: IBUPROFEN

REACTIONS (4)
  - Product quality issue [None]
  - Pain in extremity [None]
  - Pain [None]
  - Middle insomnia [None]

NARRATIVE: CASE EVENT DATE: 20150817
